FAERS Safety Report 9960828 (Version 1)
Quarter: 2014Q1

REPORT INFORMATION
  Report Type: Spontaneous
  Country: US (occurrence: US)
  Receive Date: 20140305
  Receipt Date: 20140305
  Transmission Date: 20141002
  Serious: Yes (Other)
  Sender: FDA-Public Use
  Company Number: US-ABBVIE-13P-163-1108171-00

PATIENT
  Age: 35 Year
  Sex: Female
  Weight: 71.28 kg

DRUGS (6)
  1. HUMIRA [Suspect]
     Indication: CROHN^S DISEASE
     Dosage: ONCE
     Route: 058
     Dates: start: 201110, end: 201110
  2. HUMIRA [Suspect]
     Dosage: ONCE
     Route: 058
     Dates: start: 201110, end: 201110
  3. HUMIRA [Suspect]
     Route: 058
     Dates: start: 201111, end: 20130527
  4. PENTASA [Concomitant]
     Indication: CROHN^S DISEASE
  5. LEXAPRO [Concomitant]
     Indication: ANXIETY DISORDER
  6. OMEPRAZOLE [Concomitant]
     Indication: GASTROOESOPHAGEAL REFLUX DISEASE

REACTIONS (1)
  - Malignant melanoma [Not Recovered/Not Resolved]
